FAERS Safety Report 5320012-3 (Version None)
Quarter: 2007Q2

REPORT INFORMATION
  Report Type: 
  Country: None (occurrence: None)
  Receive Date: 20070509
  Receipt Date: 20070501
  Transmission Date: 20071010
  Serious: Yes (Hospitalization, Other)
  Sender: FDA-Public Use
  Company Number: US-JNJFOC-20070302848

PATIENT
  Sex: Female
  Weight: 85.73 kg

DRUGS (9)
  1. REMICADE [Suspect]
     Route: 042
  2. REMICADE [Suspect]
     Indication: DRUG USE FOR UNKNOWN INDICATION
     Route: 042
  3. PAXIL [Concomitant]
  4. BUSPAR [Concomitant]
  5. YASMIN [Concomitant]
     Dosage: FOR GREATER THAN 1 YEAR
  6. LOMOTIL [Concomitant]
     Dosage: FOR GREATER THAN 10 YEARS
  7. LEVSIN [Concomitant]
     Dosage: FOR GREATER THAN 10 YEARS
  8. REMERON [Concomitant]
     Dosage: FOR 4 YEARS
  9. TYLENOL [Concomitant]
     Dosage: DOSE: IN COMBO MEDS

REACTIONS (3)
  - GRANULOMATOUS LIVER DISEASE [None]
  - PYREXIA [None]
  - RESPIRATORY DISORDER [None]
